FAERS Safety Report 4371801-3 (Version None)
Quarter: 2004Q2

REPORT INFORMATION
  Report Type: 
  Country: None (occurrence: None)
  Receive Date: 20040604
  Receipt Date: 20040604
  Transmission Date: 20050107
  Serious: Yes (Hospitalization)
  Sender: FDA-Public Use
  Company Number: None

PATIENT
  Sex: Female
  Weight: 95.8 kg

DRUGS (8)
  1. HYDROXYUREA [Suspect]
     Indication: TONSIL CANCER
     Dosage: 500 MG BID ORAL
     Route: 048
     Dates: start: 20040209, end: 20040319
  2. IRESSA [Suspect]
     Indication: TONSIL CANCER
     Dosage: 250 MG Q DAY
     Dates: start: 20040209, end: 20040319
  3. FLUOROURACIL [Suspect]
     Indication: TONSIL CANCER
     Dosage: QDAY IV
     Route: 042
     Dates: start: 20040209, end: 20040319
  4. DARVOCET-N 100 [Concomitant]
  5. VICODIN [Concomitant]
  6. ATIVAN [Concomitant]
  7. COMPAZINE [Concomitant]
  8. ZOFRAN [Concomitant]

REACTIONS (3)
  - DEHYDRATION [None]
  - MUCOSAL INFLAMMATION [None]
  - PAIN [None]
